FAERS Safety Report 5283000-1 (Version None)
Quarter: 2007Q1

REPORT INFORMATION
  Report Type: 
  Country: None (occurrence: None)
  Receive Date: 20070329
  Receipt Date: 20070329
  Transmission Date: 20070707
  Serious: Yes (Hospitalization)
  Sender: FDA-Public Use
  Company Number: None

PATIENT
  Age: 57 Year
  Sex: Male
  Weight: 83.4619 kg

DRUGS (13)
  1. IBUPROFEN [Suspect]
     Indication: BACK PAIN
     Dosage: 400 MG  Q-4-6 HRS  PO
     Route: 048
     Dates: start: 20070217, end: 20070226
  2. IBUPROFEN [Suspect]
     Indication: NECK PAIN
     Dosage: 400 MG  Q-4-6 HRS  PO
     Route: 048
     Dates: start: 20070217, end: 20070226
  3. VOLTAREN [Suspect]
     Indication: BACK PAIN
     Dosage: 75 MG  BID  PO
     Route: 048
     Dates: start: 20070217, end: 20070226
  4. VOLTAREN [Suspect]
     Indication: NECK PAIN
     Dosage: 75 MG  BID  PO
     Route: 048
     Dates: start: 20070217, end: 20070226
  5. ASPIRIN [Concomitant]
  6. FELODIPINE [Concomitant]
  7. FUROSEMIDE [Concomitant]
  8. NOVOLIN 70/30 [Concomitant]
  9. ISOSORBIDE MONONITRATE [Concomitant]
  10. LISINOPRIL [Concomitant]
  11. METOPROLOL SUCCINATE [Concomitant]
  12. SPIRONLACTONE [Concomitant]
  13. TRAZODONE HCL [Concomitant]

REACTIONS (3)
  - BRAIN NATRIURETIC PEPTIDE INCREASED [None]
  - CARDIAC FAILURE CONGESTIVE [None]
  - CONDITION AGGRAVATED [None]
